FAERS Safety Report 10474746 (Version 1)
Quarter: 2014Q3

REPORT INFORMATION
  Report Type: Spontaneous
  Country: US (occurrence: US)
  Receive Date: 20140925
  Receipt Date: 20140925
  Transmission Date: 20150326
  Serious: No
  Sender: FDA-Public Use
  Company Number: US-TEVA-491690USA

PATIENT

DRUGS (1)
  1. AMIKACIN [Suspect]
     Active Substance: AMIKACIN
     Route: 030

REACTIONS (1)
  - Injection site pain [Unknown]
